FAERS Safety Report 10528945 (Version 1)
Quarter: 2014Q4

REPORT INFORMATION
  Report Type: Spontaneous
  Country: US (occurrence: None)
  Receive Date: 20141016
  Receipt Date: 20141016
  Transmission Date: 20150528
  Serious: Yes (Hospitalization)
  Sender: FDA-Public Use
  Company Number: None

PATIENT
  Age: 44 Year
  Sex: Male
  Weight: 103.33 kg

DRUGS (1)
  1. VELCADE [Suspect]
     Active Substance: BORTEZOMIB
     Indication: PLASMA CELL MYELOMA
     Dosage: D1 + D4 IV PUSH 3 MG EACH
     Dates: start: 20141006

REACTIONS (2)
  - Spinal cord compression [None]
  - Muscular weakness [None]

NARRATIVE: CASE EVENT DATE: 20141013
